FAERS Safety Report 8900894 (Version 1)
Quarter: 2012Q4

REPORT INFORMATION
  Report Type: Report from Study
  Country: DE (occurrence: DE)
  Receive Date: 20121109
  Receipt Date: 20121109
  Transmission Date: 20130627
  Serious: Yes (Other)
  Sender: FDA-Public Use
  Company Number: DE-US-EMD SERONO, INC.-7162117

PATIENT
  Age: 26 Year
  Sex: Female
  Weight: 68 kg

DRUGS (3)
  1. REBIF [Suspect]
     Indication: RELAPSING-REMITTING MULTIPLE SCLEROSIS
     Route: 058
     Dates: start: 20100518, end: 201011
  2. PRIVIGEN [Concomitant]
     Dates: start: 201104
  3. PARACETAMOL [Concomitant]
     Indication: INFLUENZA LIKE ILLNESS
     Route: 048
     Dates: start: 20100518, end: 20100715

REACTIONS (4)
  - Caesarean section [Unknown]
  - Live birth [Recovered/Resolved]
  - Pregnancy [Recovered/Resolved]
  - Maternal exposure timing unspecified [Recovered/Resolved]
